FAERS Safety Report 12555728 (Version 1)
Quarter: 2016Q3

REPORT INFORMATION
  Report Type: Spontaneous
  Country: US (occurrence: US)
  Receive Date: 20160714
  Receipt Date: 20160714
  Transmission Date: 20161109
  Serious: No
  Sender: FDA-Public Use
  Company Number: US-PFIZER INC-2016326634

PATIENT
  Sex: Male

DRUGS (1)
  1. CHANTIX [Suspect]
     Active Substance: VARENICLINE TARTRATE
     Dosage: UNK
     Dates: end: 201606

REACTIONS (3)
  - Frustration tolerance decreased [Unknown]
  - Irritability [Unknown]
  - Anger [Unknown]

NARRATIVE: CASE EVENT DATE: 201606
